FAERS Safety Report 13961694 (Version 8)
Quarter: 2023Q4

REPORT INFORMATION
  Report Type: Spontaneous
  Country: US (occurrence: US)
  Receive Date: 20170912
  Receipt Date: 20231120
  Transmission Date: 20240110
  Serious: No
  Sender: FDA-Public Use
  Company Number: US-PFIZER INC-2017018232

PATIENT
  Age: 52 Year
  Sex: Male
  Weight: 173 kg

DRUGS (8)
  1. XELJANZ [Suspect]
     Active Substance: TOFACITINIB CITRATE
     Indication: Psoriatic arthropathy
     Dosage: 5 MG
  2. XELJANZ [Suspect]
     Active Substance: TOFACITINIB CITRATE
     Indication: Rheumatoid arthritis
     Dosage: 5 MG, DAILY
  3. XELJANZ [Suspect]
     Active Substance: TOFACITINIB CITRATE
     Indication: Psoriasis
     Dosage: 5 MG, 2X/DAY
     Route: 048
     Dates: start: 2016
  4. XELJANZ [Suspect]
     Active Substance: TOFACITINIB CITRATE
     Indication: Psoriatic arthropathy
     Dosage: 5 MG, 2X/DAY
     Route: 048
     Dates: end: 2018
  5. XELJANZ [Suspect]
     Active Substance: TOFACITINIB CITRATE
     Dosage: 5 MG, 2X/DAY
     Route: 048
     Dates: end: 201901
  6. XELJANZ [Suspect]
     Active Substance: TOFACITINIB CITRATE
     Dosage: 5 MG
  7. XELJANZ [Suspect]
     Active Substance: TOFACITINIB CITRATE
     Dosage: 5 MG, 2X/DAY
     Route: 048
     Dates: start: 202309
  8. RINVOQ [Concomitant]
     Active Substance: UPADACITINIB

REACTIONS (8)
  - Intentional product use issue [Unknown]
  - Intervertebral disc protrusion [Recovering/Resolving]
  - Disease recurrence [Recovering/Resolving]
  - Peroneal nerve palsy [Recovering/Resolving]
  - Influenza [Recovered/Resolved]
  - Ear infection [Recovered/Resolved]
  - Herpes zoster [Not Recovered/Not Resolved]
  - Fatigue [Unknown]

NARRATIVE: CASE EVENT DATE: 20170101
